FAERS Safety Report 6875793-4 (Version None)
Quarter: 2010Q3

REPORT INFORMATION
  Report Type: 
  Country: None (occurrence: None)
  Receive Date: 20100727
  Receipt Date: 20070730
  Transmission Date: 20110219
  Serious: Yes (Hospitalization, Other)
  Sender: FDA-Public Use
  Company Number: US-PFIZER INC-2006146829

PATIENT
  Sex: Female
  Weight: 86.2 kg

DRUGS (5)
  1. CELEBREX [Suspect]
     Indication: ARTHRITIS
     Route: 048
     Dates: start: 20040601
  2. VIOXX [Suspect]
     Indication: ARTHRITIS
     Route: 048
     Dates: start: 20020707
  3. TOPROL-XL [Concomitant]
     Indication: HYPERTENSION
     Dates: start: 20040126
  4. CLONIDINE [Concomitant]
     Indication: CARDIAC DISORDER
     Dates: start: 20040305
  5. NITROGLYCERIN [Concomitant]
     Indication: CARDIAC DISORDER
     Dates: start: 20031109

REACTIONS (1)
  - CEREBROVASCULAR ACCIDENT [None]
